FAERS Safety Report 21919280 (Version 1)
Quarter: 2023Q1

REPORT INFORMATION
  Report Type: Spontaneous
  Country: US (occurrence: US)
  Receive Date: 20230127
  Receipt Date: 20230127
  Transmission Date: 20230417
  Serious: Yes (Death)
  Sender: FDA-Public Use
  Company Number: US-PERRIGO-23US001161

PATIENT
  Age: 17 Year
  Sex: Male

DRUGS (7)
  1. OMEPRAZOLE [Suspect]
     Active Substance: OMEPRAZOLE
     Indication: Drug abuse
     Dosage: UNK
     Route: 048
  2. BUPROPION [Suspect]
     Active Substance: BUPROPION
     Indication: Drug abuse
     Dosage: UNK
     Route: 048
  3. CLONAZEPAM [Suspect]
     Active Substance: CLONAZEPAM
     Indication: Drug abuse
     Dosage: UNK
     Route: 048
  4. CLONIDINE [Suspect]
     Active Substance: CLONIDINE
     Indication: Drug abuse
     Dosage: UNK
     Route: 048
  5. PALIPERIDONE [Suspect]
     Active Substance: PALIPERIDONE
     Indication: Drug abuse
     Dosage: UNK
     Route: 048
  6. LAMOTRIGINE [Suspect]
     Active Substance: LAMOTRIGINE
     Indication: Drug abuse
     Dosage: UNK
     Route: 048
  7. ONDANSETRON [Suspect]
     Active Substance: ONDANSETRON
     Indication: Drug abuse
     Dosage: UNK
     Route: 048

REACTIONS (1)
  - Exposure to toxic agent [Fatal]

NARRATIVE: CASE EVENT DATE: 20210101
